FAERS Safety Report 6500369-8 (Version None)
Quarter: 2009Q4

REPORT INFORMATION
  Report Type: 
  Country: None (occurrence: None)
  Receive Date: 20091216
  Receipt Date: 20091203
  Transmission Date: 20100525
  Serious: Yes (Hospitalization, Other)
  Sender: FDA-Public Use
  Company Number: PHHY2009GB17195

PATIENT
  Sex: Male

DRUGS (7)
  1. CLOZARIL [Suspect]
     Indication: SCHIZOPHRENIA
     Dosage: UNK
     Route: 048
     Dates: start: 20070813
  2. VALPROATE SODIUM [Concomitant]
     Indication: MOOD SWINGS
     Dosage: 1500 MG/DAY
     Route: 048
  3. OMEPRAZOLE [Concomitant]
     Indication: HIATUS HERNIA
     Dosage: 40 MG/DAY
     Route: 048
     Dates: start: 20090427
  4. TEMAZEPAM [Concomitant]
     Indication: INSOMNIA
     Dosage: 10 MG DAILY
     Route: 048
     Dates: start: 20090427
  5. PARACETAMOL [Concomitant]
     Indication: PAIN
     Dosage: 4 G DAILY
     Route: 048
     Dates: start: 20090427
  6. FYBOGEL [Concomitant]
     Indication: CONSTIPATION
     Dosage: 2 MG DAILY
     Route: 048
  7. NICOTINE [Concomitant]
     Indication: SMOKING CESSATION THERAPY
     Dosage: 14 MG, UNK
     Dates: start: 20090427

REACTIONS (15)
  - ANAEMIA [None]
  - BARRETT'S OESOPHAGUS [None]
  - COLLAPSE OF LUNG [None]
  - FALL [None]
  - FEMUR FRACTURE [None]
  - HIATUS HERNIA [None]
  - HIP SURGERY [None]
  - LEFT VENTRICULAR FAILURE [None]
  - MECHANICAL VENTILATION [None]
  - OESOPHAGEAL DILATATION [None]
  - OESOPHAGITIS ULCERATIVE [None]
  - PNEUMONIA ASPIRATION [None]
  - PULMONARY EMBOLISM [None]
  - RESPIRATORY ARREST [None]
  - TRACHEOSTOMY [None]
